FAERS Safety Report 12421322 (Version 1)
Quarter: 2016Q2

REPORT INFORMATION
  Report Type: Spontaneous
  Country: GB (occurrence: GB)
  Receive Date: 20160531
  Receipt Date: 20160531
  Transmission Date: 20160815
  Serious: Yes (Hospitalization)
  Sender: FDA-Public Use
  Company Number: GB-GUERBET LLC-1052966

PATIENT
  Age: 29 Year
  Sex: Female

DRUGS (1)
  1. DOTAREM [Suspect]
     Active Substance: GADOTERATE MEGLUMINE
     Indication: NUCLEAR MAGNETIC RESONANCE IMAGING
     Dates: start: 20160519, end: 20160519

REACTIONS (3)
  - Dyspnoea [Unknown]
  - Ocular hyperaemia [Unknown]
  - Rash generalised [Unknown]

NARRATIVE: CASE EVENT DATE: 20160519
